FAERS Safety Report 9460649 (Version 2)
Quarter: 2013Q3

REPORT INFORMATION
  Report Type: Spontaneous
  Country: US (occurrence: US)
  Receive Date: 20130815
  Receipt Date: 20130929
  Transmission Date: 20140515
  Serious: Yes (Other)
  Sender: FDA-Public Use
  Company Number: PHEH2013US017280

PATIENT
  Age: 56 Year
  Sex: Male
  Weight: 125 kg

DRUGS (5)
  1. FANAPT [Suspect]
     Indication: SCHIZOPHRENIA
     Dosage: 2 MG, BID
     Route: 048
     Dates: start: 20130730, end: 20130731
  2. FANAPT [Suspect]
     Indication: PSYCHOTIC DISORDER
  3. HALDOL [Concomitant]
     Dosage: 15 MG, UNK
     Route: 048
  4. TRAZODONE [Concomitant]
     Dosage: 50 MG,PER DAY
     Route: 048
  5. COSANTIN [Concomitant]
     Dosage: 4 MG, UNK
     Route: 048

REACTIONS (7)
  - Encephalopathy [Recovered/Resolved]
  - Balance disorder [Recovered/Resolved]
  - Disturbance in attention [Recovered/Resolved]
  - Lethargy [Recovered/Resolved]
  - Asthenia [Recovered/Resolved]
  - Dementia [Recovering/Resolving]
  - Anticholinergic syndrome [Recovering/Resolving]
